FAERS Safety Report 9144523 (Version 2)
Quarter: 2013Q1

REPORT INFORMATION
  Report Type: Spontaneous
  Country: US (occurrence: US)
  Receive Date: 20130306
  Receipt Date: 20130312
  Transmission Date: 20140127
  Serious: Yes (Other)
  Sender: FDA-Public Use
  Company Number: US-ABBOTT-13P-163-1057591-00

PATIENT
  Sex: Male
  Weight: 83.99 kg

DRUGS (10)
  1. HUMIRA [Suspect]
     Indication: PSORIATIC ARTHROPATHY
     Dates: start: 2002
  2. LISINOPRIL [Concomitant]
     Indication: PRODUCT USED FOR UNKNOWN INDICATION
  3. AMLODIPINE BESYLATE [Concomitant]
     Indication: PRODUCT USED FOR UNKNOWN INDICATION
  4. GABAPENTIN [Concomitant]
     Indication: SCIATICA
  5. OXYCODONE [Concomitant]
     Indication: SCIATICA
  6. PAXIL [Concomitant]
     Indication: PRODUCT USED FOR UNKNOWN INDICATION
  7. XANAX [Concomitant]
     Indication: PRODUCT USED FOR UNKNOWN INDICATION
  8. VOLTARENN GEL [Concomitant]
     Indication: ARTHRALGIA
     Route: 061
  9. LIDOCAINE PATCH [Concomitant]
     Indication: ARTHRALGIA
  10. BUPROPION [Concomitant]
     Indication: ANXIETY

REACTIONS (8)
  - Limb injury [Recovered/Resolved]
  - Unevaluable event [Not Recovered/Not Resolved]
  - Nerve injury [Not Recovered/Not Resolved]
  - Barrett^s oesophagus [Not Recovered/Not Resolved]
  - Oesophageal ulcer [Unknown]
  - Tooth disorder [Not Recovered/Not Resolved]
  - Lymphadenopathy [Not Recovered/Not Resolved]
  - Oral infection [Not Recovered/Not Resolved]
